FAERS Safety Report 10646048 (Version 1)
Quarter: 2014Q4

REPORT INFORMATION
  Report Type: Spontaneous
  Country: AR (occurrence: None)
  Receive Date: 20141209
  Receipt Date: 20141209
  Transmission Date: 20150529
  Serious: Yes (Congenital Anomaly)
  Sender: FDA-Public Use
  Company Number: 2014SA167401

PATIENT
  Sex: Male

DRUGS (7)
  1. MEPREDNISONE [Suspect]
     Active Substance: MEPREDNISONE
     Indication: MATERNAL EXPOSURE TIMING UNSPECIFIED
     Route: 064
  2. COLESTYRAMINE [Suspect]
     Active Substance: CHOLESTYRAMINE
     Indication: MATERNAL EXPOSURE TIMING UNSPECIFIED
  3. CYCLOSPORIN [Suspect]
     Active Substance: CYCLOSPORINE
     Indication: MATERNAL EXPOSURE TIMING UNSPECIFIED
     Route: 064
  4. MYCOPHENOLATE MOFETIL (MYCOPHENOLATE MOFETIL) [Suspect]
     Active Substance: MYCOPHENOLATE MOFETIL
     Indication: MATERNAL EXPOSURE TIMING UNSPECIFIED
     Route: 064
  5. DIPHENHYDRAMINE (DIPHENHYDRAMINE) [Suspect]
     Active Substance: DIPHENHYDRAMINE
     Indication: MATERNAL EXPOSURE TIMING UNSPECIFIED
     Route: 064
  6. URSODEOXYCHOLIC ACID [Suspect]
     Active Substance: URSODIOL
     Indication: MATERNAL EXPOSURE TIMING UNSPECIFIED
     Route: 064
  7. AZATHIOPRINE (AZATHIOPRINE) [Suspect]
     Active Substance: AZATHIOPRINE
     Indication: MATERNAL EXPOSURE TIMING UNSPECIFIED
     Route: 064

REACTIONS (4)
  - Foetal exposure during pregnancy [None]
  - Hemivertebra [None]
  - Polyhydramnios [None]
  - Oesophageal atresia [None]
